FAERS Safety Report 21790573 (Version 1)
Quarter: 2022Q4

REPORT INFORMATION
  Report Type: Spontaneous
  Country: US (occurrence: None)
  Receive Date: 20221216
  Receipt Date: 20221216
  Transmission Date: 20230113
  Serious: No
  Sender: FDA-Public Use
  Company Number: None

PATIENT
  Sex: Female

DRUGS (2)
  1. REMODULIN [Suspect]
     Active Substance: TREPROSTINIL
     Indication: Pulmonary arterial hypertension
     Dosage: OTHER QUANTITY : 112 NG/KG/MIN;?OTHER FREQUENCY : CONTINUOUS ;?
     Dates: start: 202007
  2. DEVICE [Suspect]
     Active Substance: DEVICE

REACTIONS (3)
  - Recalled product [None]
  - Product quality issue [None]
  - Influenza like illness [None]
